FAERS Safety Report 5325828-5 (Version None)
Quarter: 2007Q2

REPORT INFORMATION
  Report Type: 
  Country: None (occurrence: None)
  Receive Date: 20070510
  Receipt Date: 20060407
  Transmission Date: 20071010
  Serious: Yes (Other)
  Sender: FDA-Public Use
  Company Number: 2006PO0048FU1

PATIENT
  Sex: Male

DRUGS (6)
  1. PONSTEL [Suspect]
     Indication: ILL-DEFINED DISORDER
  2. PLENDIL [Suspect]
     Indication: ILL-DEFINED DISORDER
  3. NORGESIC [Suspect]
     Indication: ILL-DEFINED DISORDER
  4. DYNASTAT [Suspect]
  5. ANTI-HYPERTENSIVE MEDICATION [Concomitant]
  6. AUGMENTIN '125' [Concomitant]

REACTIONS (5)
  - ANAL FISTULA [None]
  - PROCEDURAL PAIN [None]
  - RASH [None]
  - URTICARIA [None]
  - URTICARIA GENERALISED [None]
